FAERS Safety Report 18582032 (Version 1)
Quarter: 2020Q4

REPORT INFORMATION
  Report Type: Spontaneous
  Country: US (occurrence: US)
  Receive Date: 20201202
  Receipt Date: 20201202
  Transmission Date: 20210114
  Serious: Yes (Life-Threatening)
  Sender: FDA-Public Use
  Company Number: None

PATIENT
  Age: 74 Year
  Sex: Male

DRUGS (1)
  1. TOPAMAX [Suspect]
     Active Substance: TOPIRAMATE
     Indication: MIGRAINE PROPHYLAXIS
     Route: 048
     Dates: start: 20190824, end: 20190824

REACTIONS (13)
  - Axillary pain [None]
  - Sensation of foreign body [None]
  - Swelling face [None]
  - Anaphylactic reaction [None]
  - Eye irritation [None]
  - Pubic pain [None]
  - Speech disorder [None]
  - Urticaria [None]
  - Pruritus [None]
  - Lacrimation increased [None]
  - Dysphonia [None]
  - Eye swelling [None]
  - Pain in extremity [None]

NARRATIVE: CASE EVENT DATE: 20190824
